FAERS Safety Report 9454847 (Version 4)
Quarter: 2013Q4

REPORT INFORMATION
  Report Type: Spontaneous
  Country: JP (occurrence: JP)
  Receive Date: 20130813
  Receipt Date: 20131011
  Transmission Date: 20140711
  Serious: Yes (Hospitalization)
  Sender: FDA-Public Use
  Company Number: JP-MERCK-1308JPN003890

PATIENT
  Age: 59 Year
  Sex: Female

DRUGS (27)
  1. REFLEX [Suspect]
     Indication: DEPRESSION
     Dosage: 30MG DAILY
     Route: 048
     Dates: end: 20130627
  2. REFLEX [Suspect]
     Dosage: 15MG DAILY
     Route: 048
     Dates: start: 20130628, end: 20130708
  3. REFLEX [Suspect]
     Dosage: 30MG DAILY
     Route: 048
     Dates: start: 20130709
  4. REMERON [Suspect]
     Dosage: UNK
     Route: 048
     Dates: start: 201008
  5. LEXAPRO [Suspect]
     Indication: DEPRESSION
     Dosage: 10 MG DAILY DOSE
     Route: 048
     Dates: end: 20130627
  6. LEXAPRO [Suspect]
     Dosage: 5 MG DAILY DOSE
     Route: 048
     Dates: start: 20130628, end: 20130708
  7. LEXAPRO [Suspect]
     Dosage: 10 MG DAILY DOSE
     Route: 048
     Dates: start: 20130709
  8. FLUNITRAZEPAM [Concomitant]
     Indication: INSOMNIA
     Dosage: 1MG
     Route: 048
  9. FLUNITRAZEPAM [Concomitant]
     Indication: DEPRESSION
  10. ZOLPIDEM TARTRATE [Concomitant]
     Indication: INSOMNIA
     Dosage: 10 MG
     Route: 048
     Dates: end: 20130701
  11. ZOLPIDEM TARTRATE [Concomitant]
     Indication: DEPRESSION
  12. ESZOPICLONE [Concomitant]
     Indication: INSOMNIA
     Dosage: 3MG
     Route: 048
     Dates: start: 20130702
  13. ESZOPICLONE [Concomitant]
     Indication: DEPRESSION
  14. RABEPRAZOLE SODIUM [Concomitant]
     Indication: GASTRIC CANCER
     Dosage: 10MG
     Route: 048
  15. ETIZOLAM [Concomitant]
     Indication: INSOMNIA
     Dosage: 0.5 MG
     Route: 048
     Dates: end: 20130724
  16. ETIZOLAM [Concomitant]
     Indication: DEPRESSION
  17. HYDROXYZINE [Concomitant]
     Indication: INSOMNIA
     Dosage: 50MG
     Route: 048
     Dates: end: 20130801
  18. HYDROXYZINE [Concomitant]
     Indication: DEPRESSION
  19. METFORMIN HYDROCHLORIDE [Concomitant]
     Indication: DIABETES MELLITUS
     Dosage: 750NG
     Route: 048
  20. MOSAPRIDE CITRATE [Concomitant]
     Indication: GASTRIC CANCER
     Dosage: 15MG
     Route: 048
  21. MECOBALAMIN [Concomitant]
     Indication: DIABETIC NEUROPATHY
     Dosage: 1500 MICROGRAM
     Route: 048
     Dates: end: 20130724
  22. PREGABALIN [Concomitant]
     Indication: DIABETIC NEUROPATHY
     Dosage: 300 MG
     Route: 048
  23. SENNOSIDES [Concomitant]
     Indication: CONSTIPATION
     Dosage: 1.0G
     Route: 048
  24. DOXAZOSIN MESYLATE [Concomitant]
     Indication: HYPERTENSION
     Dosage: 4MG
     Route: 048
     Dates: end: 20130717
  25. DOXAZOSIN MESYLATE [Concomitant]
     Dosage: 2MG
     Route: 048
     Dates: start: 20130718, end: 20130723
  26. AZILSARTAN [Concomitant]
     Indication: HYPERTENSION
     Dosage: 20MG
     Route: 048
     Dates: end: 20130801
  27. DORZOLAMIDE HYDROCHLORIDE [Concomitant]
     Indication: GLAUCOMA
     Dosage: 3 DROPS
     Route: 031

REACTIONS (1)
  - Parkinson^s disease [Recovering/Resolving]
